FAERS Safety Report 5404784-5 (Version None)
Quarter: 2007Q3

REPORT INFORMATION
  Report Type: 
  Country: None (occurrence: None)
  Receive Date: 20070713
  Receipt Date: 20070129
  Transmission Date: 20080115
  Serious: Yes (Death, Hospitalization)
  Sender: FDA-Public Use
  Company Number: REM_00317_2007

PATIENT
  Sex: Female
  Weight: 82.1011 kg

DRUGS (8)
  1. REMODULIN [Suspect]
     Indication: PULMONARY HYPERTENSION
     Dosage: 92.5 NG/KG/MIN (0.0925 UG/KG,1 IN 1 MIN),INTRAVENOUS
     Route: 042
     Dates: start: 20050614, end: 20070122
  2. DARVOCET /00220901/(APOREX) [Concomitant]
  3. TYLENOL /00020001/ (PARACETAMOL) [Concomitant]
  4. SPIRONOLACTONE [Concomitant]
  5. DIGOXIN [Concomitant]
  6. ASPIRIN [Concomitant]
  7. COUMADIN [Concomitant]
  8. OXYGEN (OXYGEN) [Concomitant]

REACTIONS (1)
  - STAPHYLOCOCCAL SEPSIS [None]
